FAERS Safety Report 11555815 (Version 2)
Quarter: 2015Q4

REPORT INFORMATION
  Report Type: Spontaneous
  Country: US (occurrence: US)
  Receive Date: 20150925
  Receipt Date: 20151009
  Transmission Date: 20160304
  Serious: Yes (Other)
  Sender: FDA-Public Use
  Company Number: US-BAYER-2015-425100

PATIENT
  Sex: Male

DRUGS (3)
  1. BETASERON [Suspect]
     Active Substance: INTERFERON BETA-1B
  2. TECFIDERA [Suspect]
     Active Substance: DIMETHYL FUMARATE
  3. TYSABRI [Suspect]
     Active Substance: NATALIZUMAB

REACTIONS (8)
  - Hypoaesthesia [None]
  - Pain in extremity [None]
  - Drug ineffective [None]
  - Gait disturbance [Recovering/Resolving]
  - Exostosis [None]
  - Paraesthesia [None]
  - Balance disorder [Recovering/Resolving]
  - Ligament disorder [None]
